FAERS Safety Report 13687742 (Version 3)
Quarter: 2017Q3

REPORT INFORMATION
  Report Type: Spontaneous
  Country: DE (occurrence: DE)
  Receive Date: 20170625
  Receipt Date: 20170802
  Transmission Date: 20171127
  Serious: Yes (Death, Hospitalization)
  Sender: FDA-Public Use
  Company Number: DE-009507513-1706DEU008432

PATIENT
  Age: 68 Year
  Sex: Male

DRUGS (12)
  1. PALLADON [Concomitant]
     Active Substance: HYDROMORPHONE
     Dosage: 16 MG, BID
  2. LAXOBERAL [Concomitant]
     Active Substance: SODIUM PICOSULFATE
     Dosage: 15 DROPS, QD
  3. MOVICOL [Concomitant]
     Active Substance: POLYETHYLENE GLYCOL 3350\POTASSIUM CHLORIDE\SODIUM BICARBONATE\SODIUM CHLORIDE
     Dosage: AS NEEDED
  4. DECORTIN [Concomitant]
     Active Substance: PREDNISONE
     Dosage: 1 DF, TID, STRENGTH: 50 (UNIT NOT PROVIDED)
  5. MSI [Concomitant]
     Active Substance: MORPHINE SULFATE
     Indication: ANALGESIC THERAPY
     Dosage: 10 MG, DAILY
     Route: 058
  6. ELECTROLYTES (UNSPECIFIED) [Concomitant]
     Active Substance: ELECTROLYTES NOS
     Dosage: 1000 ML, UNK
     Route: 042
  7. CLEXANE (SURICLONE) [Concomitant]
     Active Substance: ENOXAPARIN SODIUM
     Dosage: 1 DF, QD, STRENGTH: 0.4 (UNIT NOT PROVIDED)
     Route: 057
  8. KEYTRUDA [Suspect]
     Active Substance: PEMBROLIZUMAB
     Indication: NON-SMALL CELL LUNG CANCER METASTATIC
     Dosage: 200 MG, EVERY 3 WEEKS
     Route: 042
     Dates: start: 20170403, end: 20170424
  9. L THYROX [Concomitant]
     Dosage: 0.5 DF, QD
  10. DEKRISTOL [Concomitant]
     Active Substance: CHOLECALCIFEROL
     Dosage: 1 DF, QW, , STRENGTH: 20000 (UNIT NOT PROVIDED)
  11. PANTOZOL [Concomitant]
     Active Substance: PANTOPRAZOLE SODIUM
     Dosage: 40 MG, QD
  12. MERONEM [Concomitant]
     Active Substance: MEROPENEM
     Dosage: 1 G, TID

REACTIONS (6)
  - Toxic epidermal necrolysis [Unknown]
  - Epidermolysis [Fatal]
  - Multiple organ dysfunction syndrome [Fatal]
  - Blister [Unknown]
  - Rash [Unknown]
  - Sepsis [Fatal]

NARRATIVE: CASE EVENT DATE: 20170427
